FAERS Safety Report 24574117 (Version 1)
Quarter: 2024Q4

REPORT INFORMATION
  Report Type: Spontaneous
  Country: US (occurrence: US)
  Receive Date: 20241104
  Receipt Date: 20241104
  Transmission Date: 20250115
  Serious: Yes (Life-Threatening, Other)
  Sender: Unknown Manufacturer
  Company Number: US-MELINTA THERAPEUTICS, LLC-US-MLNT-24-00503

PATIENT

DRUGS (2)
  1. KIMYRSA [Suspect]
     Active Substance: ORITAVANCIN DIPHOSPHATE
     Indication: Product used for unknown indication
     Dosage: UNK, SINGLE
     Route: 041
  2. KIMYRSA [Suspect]
     Active Substance: ORITAVANCIN DIPHOSPHATE
     Dosage: UNK, SINGLE
     Route: 041

REACTIONS (6)
  - Cardiac arrest [Unknown]
  - Seizure [Unknown]
  - Syncope [Unknown]
  - Multiple use of single-use product [Unknown]
  - Ocular hyperaemia [Unknown]
  - Hyperhidrosis [Unknown]
